FAERS Safety Report 9802994 (Version 1)
Quarter: 2014Q1

REPORT INFORMATION
  Report Type: Spontaneous
  Country: US (occurrence: US)
  Receive Date: 20140108
  Receipt Date: 20140108
  Transmission Date: 20141002
  Serious: No
  Sender: FDA-Public Use
  Company Number: US-TEVA-454640USA

PATIENT
  Age: 39 Year
  Sex: Female
  Weight: 44.49 kg

DRUGS (3)
  1. COPAXONE [Suspect]
     Indication: MULTIPLE SCLEROSIS
     Dates: start: 201310
  2. CONTRACEPTIVES NOS [Concomitant]
  3. VITAMIN D [Concomitant]

REACTIONS (2)
  - Alopecia [Not Recovered/Not Resolved]
  - Injection site swelling [Recovered/Resolved]
